FAERS Safety Report 14015005 (Version 1)
Quarter: 2017Q3

REPORT INFORMATION
  Report Type: Other
  Country: MX (occurrence: MX)
  Receive Date: 20170927
  Receipt Date: 20170927
  Transmission Date: 20171128
  Serious: Yes (Hospitalization)
  Sender: FDA-Public Use
  Company Number: MX--2017-MX-000001

PATIENT
  Age: 6 Year
  Sex: Female

DRUGS (4)
  1. PENICILLIN [Suspect]
     Active Substance: PENICILLIN
     Indication: PRODUCT USED FOR UNKNOWN INDICATION
     Route: 065
  2. IMMUNOGLOBULIN HUMAN [Suspect]
     Active Substance: HUMAN IMMUNOGLOBULIN G
     Indication: TETANUS
     Route: 030
  3. TETANUS TOXOID [Suspect]
     Active Substance: TETANUS TOXOIDS
     Indication: TETANUS
     Dosage: ONE DOSE
     Route: 065
  4. METRONIDAZOLE BRAND UNSPECIFIED (VIVIMED) [Suspect]
     Active Substance: METRONIDAZOLE
     Indication: PRODUCT USED FOR UNKNOWN INDICATION
     Route: 065

REACTIONS (5)
  - Cerebral atrophy [Recovered/Resolved]
  - Pneumothorax [Recovered/Resolved]
  - Focal dyscognitive seizures [Recovered/Resolved]
  - Pneumonia [Recovered/Resolved]
  - Endocarditis [Recovered/Resolved]
